FAERS Safety Report 25895074 (Version 2)
Quarter: 2025Q4

REPORT INFORMATION
  Report Type: Report from Study
  Country: US (occurrence: US)
  Receive Date: 20251008
  Receipt Date: 20251110
  Transmission Date: 20260119
  Serious: No
  Sender: AVERITAS
  Company Number: US-GRUNENTHAL-2025-123384

PATIENT
  Age: 65 Year
  Sex: Male

DRUGS (1)
  1. QUTENZA [Suspect]
     Active Substance: CAPSAICIN
     Indication: Diabetic neuropathy
     Dosage: UNK, ONCE
     Route: 061
     Dates: start: 20250922, end: 20250922

REACTIONS (2)
  - Burning sensation [Not Recovered/Not Resolved]
  - Pain [Unknown]

NARRATIVE: CASE EVENT DATE: 20250922
